FAERS Safety Report 8853726 (Version 8)
Quarter: 2013Q2

REPORT INFORMATION
  Report Type: Spontaneous
  Country: US (occurrence: US)
  Receive Date: 20121022
  Receipt Date: 20130522
  Transmission Date: 20140414
  Serious: Yes (Death, Hospitalization, Other)
  Sender: FDA-Public Use
  Company Number: US-009507513-1201USA00251

PATIENT
  Sex: Female
  Weight: 53.97 kg

DRUGS (7)
  1. FOSAMAX [Suspect]
     Indication: OSTEOPOROSIS
     Dosage: 10 MG, QD
     Route: 048
     Dates: start: 199702, end: 200110
  2. FOSAMAX [Suspect]
     Dosage: 70 MG, QW
     Route: 048
     Dates: start: 20010821, end: 20080325
  3. ALENDRONATE SODIUM [Suspect]
     Indication: OSTEOPOROSIS
     Dosage: 70 MG, QW
     Route: 048
     Dates: start: 20080422, end: 20080812
  4. ALENDRONATE SODIUM [Suspect]
     Indication: OSTEOPOROSIS
     Dosage: 70 MG, QW
     Route: 048
     Dates: start: 20080909, end: 201004
  5. VITAMINS (UNSPECIFIED) [Concomitant]
     Dosage: UNK
     Route: 048
     Dates: start: 1994, end: 201207
  6. CALCIUM (UNSPECIFIED) [Concomitant]
     Dosage: 600 MG, QD
     Route: 048
     Dates: start: 1994, end: 201207
  7. ASCORBIC ACID [Concomitant]
     Dosage: 500 MG, QD
     Route: 048
     Dates: start: 1994, end: 201207

REACTIONS (86)
  - Femur fracture [Unknown]
  - Intramedullary rod insertion [Unknown]
  - Spinal cord infarction [Fatal]
  - Cardiac failure congestive [Fatal]
  - Cerebrovascular accident [Unknown]
  - Device failure [Unknown]
  - Open reduction of fracture [Unknown]
  - Pelvic fracture [Recovered/Resolved]
  - Spinal laminectomy [Unknown]
  - Myocardial infarction [Unknown]
  - Epilepsy [Not Recovered/Not Resolved]
  - Breast cancer [Unknown]
  - Spinal operation [Unknown]
  - Tumour excision [Unknown]
  - Mass [Unknown]
  - Thrombosis [Unknown]
  - Paralysis flaccid [Unknown]
  - Pulmonary embolism [Unknown]
  - Acetabulum fracture [Unknown]
  - Periprosthetic fracture [Unknown]
  - Spinal laminectomy [Unknown]
  - Hip arthroplasty [Unknown]
  - Medical device removal [Unknown]
  - Cerebral infarction [Unknown]
  - Hip arthroplasty [Not Recovered/Not Resolved]
  - Pancytopenia [Unknown]
  - Haematoma evacuation [Recovered/Resolved]
  - Dyspnoea [Unknown]
  - Dyspnoea [Unknown]
  - Neck surgery [Unknown]
  - Haemoglobin decreased [Unknown]
  - Craniotomy [Unknown]
  - Pelvic fracture [Unknown]
  - Spinal operation [Unknown]
  - Joint dislocation [Unknown]
  - Leukopenia [Unknown]
  - Thrombocytopenia [Unknown]
  - Leukocytosis [Unknown]
  - Neurogenic bladder [Unknown]
  - Hypotension [Unknown]
  - Hypothyroidism [Not Recovered/Not Resolved]
  - Device component issue [Unknown]
  - Insomnia [Unknown]
  - Anxiety [Unknown]
  - Depression [Unknown]
  - Blood cholesterol increased [Not Recovered/Not Resolved]
  - Fall [Unknown]
  - Atrial fibrillation [Unknown]
  - Osteopenia [Unknown]
  - Myeloproliferative disorder [Unknown]
  - Osteoarthritis [Unknown]
  - Kyphosis [Unknown]
  - Oedema [Not Recovered/Not Resolved]
  - Bundle branch block right [Unknown]
  - Carpal tunnel syndrome [Unknown]
  - Clostridium difficile infection [Unknown]
  - Faecaloma [Unknown]
  - Neurogenic bowel [Unknown]
  - Chronic obstructive pulmonary disease [Unknown]
  - Urinary incontinence [Unknown]
  - Blood thyroid stimulating hormone increased [Unknown]
  - Pain [Not Recovered/Not Resolved]
  - Intervertebral disc protrusion [Unknown]
  - Spinal cord compression [Unknown]
  - Breast lump removal [Unknown]
  - Dyslipidaemia [Unknown]
  - Spinal osteoarthritis [Unknown]
  - Osteoarthritis [Unknown]
  - Arthritis [Unknown]
  - Heart rate increased [Unknown]
  - Anaemia postoperative [Unknown]
  - Cardiac murmur [Unknown]
  - Coronary artery disease [Unknown]
  - Carpal tunnel decompression [Unknown]
  - Gastric disorder [Unknown]
  - Muscular weakness [Unknown]
  - Pneumonia [Unknown]
  - Anaemia [Unknown]
  - Scoliosis [Unknown]
  - Lumbar spinal stenosis [Unknown]
  - Pain in extremity [Unknown]
  - Back pain [Not Recovered/Not Resolved]
  - Alopecia [Unknown]
  - Gastrooesophageal reflux disease [Unknown]
  - Drug ineffective [Unknown]
  - Pain in extremity [Unknown]
